FAERS Safety Report 16123833 (Version 1)
Quarter: 2019Q1

REPORT INFORMATION
  Report Type: Report from Study
  Country: US (occurrence: US)
  Receive Date: 20190327
  Receipt Date: 20190327
  Transmission Date: 20190418
  Serious: No
  Sender: FDA-Public Use
  Company Number: US-ALEXION PHARMACEUTICALS INC.-A201904319

PATIENT
  Sex: Female

DRUGS (1)
  1. SOLIRIS [Suspect]
     Active Substance: ECULIZUMAB
     Indication: PAROXYSMAL NOCTURNAL HAEMOGLOBINURIA
     Dosage: 900 MG, Q2W
     Route: 042

REACTIONS (11)
  - Blood potassium abnormal [Unknown]
  - Reticulocyte count abnormal [Unknown]
  - Anion gap abnormal [Unknown]
  - Blood glucose abnormal [Unknown]
  - Red blood cell count abnormal [Unknown]
  - Neutrophil percentage abnormal [Unknown]
  - Carbon dioxide abnormal [Unknown]
  - Haptoglobin abnormal [Unknown]
  - White blood cell disorder [Unknown]
  - Neutrophil count abnormal [Unknown]
  - Lymphocyte percentage abnormal [Unknown]

NARRATIVE: CASE EVENT DATE: 20190117
